FAERS Safety Report 10333682 (Version 1)
Quarter: 2014Q3

REPORT INFORMATION
  Report Type: Spontaneous
  Country: US (occurrence: US)
  Receive Date: 20140723
  Receipt Date: 20140723
  Transmission Date: 20150326
  Serious: No
  Sender: FDA-Public Use
  Company Number: US-UNITED THERAPEUTICS-UTC-048005

PATIENT
  Age: 54 Year
  Sex: Female

DRUGS (3)
  1. REMODULIN [Suspect]
     Active Substance: TREPROSTINIL
     Dosage: 0.002 UG/KG/MIN
     Route: 058
     Dates: start: 20140416
  2. VENTAVIS [Concomitant]
     Active Substance: ILOPROST
  3. REVATIO [Concomitant]
     Active Substance: SILDENAFIL CITRATE

REACTIONS (5)
  - Headache [Unknown]
  - Infusion site pain [Unknown]
  - Infusion site discomfort [Unknown]
  - Infusion site erythema [Unknown]
  - Nausea [Unknown]

NARRATIVE: CASE EVENT DATE: 201404
